FAERS Safety Report 12174285 (Version 2)
Quarter: 2016Q1

REPORT INFORMATION
  Report Type: Report from Study
  Country: FR (occurrence: FR)
  Receive Date: 20160313
  Receipt Date: 20160329
  Transmission Date: 20160526
  Serious: Yes (Death, Life-Threatening, Hospitalization, Disabling)
  Sender: FDA-Public Use
  Company Number: FR-CELGENE-056-21880-13072711

PATIENT
  Age: 65 Year
  Sex: Female
  Weight: 66 kg

DRUGS (8)
  1. REVLIMID [Suspect]
     Active Substance: LENALIDOMIDE
     Indication: DIFFUSE LARGE B-CELL LYMPHOMA
     Route: 048
     Dates: start: 20130522
  2. AUGMENTIN [Concomitant]
     Active Substance: AMOXICILLIN\CLAVULANATE POTASSIUM
     Indication: ANTI-INFECTIVE THERAPY
     Route: 065
     Dates: start: 20130715
  3. IMOVANE [Concomitant]
     Active Substance: ZOPICLONE
     Indication: INSOMNIA
     Route: 065
     Dates: start: 201306
  4. LASILIX [Concomitant]
     Active Substance: FUROSEMIDE
     Indication: FLUID RETENTION
     Route: 065
     Dates: start: 20130715
  5. LASILIX [Concomitant]
     Active Substance: FUROSEMIDE
     Route: 041
     Dates: start: 20130723
  6. REVLIMID [Suspect]
     Active Substance: LENALIDOMIDE
     Route: 048
     Dates: start: 20130619, end: 20130717
  7. SOLUPRED [Concomitant]
     Active Substance: PREDNISOLONE
     Indication: COUGH
     Route: 065
     Dates: start: 20130715
  8. ASPIRINE [Concomitant]
     Active Substance: ASPIRIN
     Indication: PRODUCT USED FOR UNKNOWN INDICATION
     Route: 065

REACTIONS (3)
  - Multiple organ dysfunction syndrome [Fatal]
  - Cardiac failure [Fatal]
  - Cardiomyopathy [Fatal]

NARRATIVE: CASE EVENT DATE: 20130717
